FAERS Safety Report 7788857-8 (Version None)
Quarter: 2011Q3

REPORT INFORMATION
  Report Type: 
  Country: None (occurrence: None)
  Receive Date: 20110928
  Receipt Date: 20110908
  Transmission Date: 20111222
  Serious: No
  Sender: FDA-Public Use
  Company Number: 2011-01289

PATIENT
  Age: 35 Year
  Sex: Male
  Weight: 74.8435 kg

DRUGS (1)
  1. ZICAM EXTREME CONGESTION RELIEF [Suspect]
     Dosage: 1 DOSE ONLY, 1 DAY/1 DOSE
     Dates: start: 20110815, end: 20110815

REACTIONS (3)
  - ANOSMIA [None]
  - NASAL DISCOMFORT [None]
  - DYSGEUSIA [None]
